FAERS Safety Report 9867073 (Version 1)
Quarter: 2014Q1

REPORT INFORMATION
  Report Type: Spontaneous
  Country: US (occurrence: US)
  Receive Date: 20140204
  Receipt Date: 20140204
  Transmission Date: 20141002
  Serious: Yes (Hospitalization, Other)
  Sender: FDA-Public Use
  Company Number: US-SA-2014SA012693

PATIENT
  Age: 74 Year
  Sex: Female

DRUGS (3)
  1. LANTUS SOLOSTAR [Suspect]
     Indication: TYPE 2 DIABETES MELLITUS
     Dosage: DOSE:30 UNIT(S)
     Route: 065
     Dates: start: 201311
  2. SOLOSTAR [Concomitant]
     Indication: TYPE 2 DIABETES MELLITUS
     Dates: start: 201311
  3. METFORMIN [Concomitant]

REACTIONS (10)
  - Constipation [Unknown]
  - Renal disorder [Unknown]
  - Blood urine present [Unknown]
  - Rectal haemorrhage [Unknown]
  - Thrombosis [Unknown]
  - Apparent life threatening event [Unknown]
  - Dehydration [Unknown]
  - Injury associated with device [Unknown]
  - Pain in extremity [Unknown]
  - Underdose [Unknown]
